FAERS Safety Report 25066200 (Version 1)
Quarter: 2025Q1

REPORT INFORMATION
  Report Type: Report from Study
  Country: US (occurrence: US)
  Receive Date: 20250312
  Receipt Date: 20250312
  Transmission Date: 20250409
  Serious: Yes (Other)
  Sender: JOHNSON AND JOHNSON
  Company Number: US-JNJFOC-20250308115

PATIENT
  Age: 45 Year
  Sex: Female

DRUGS (3)
  1. SPRAVATO [Suspect]
     Active Substance: ESKETAMINE
     Indication: Depression
     Route: 045
     Dates: start: 20250220, end: 20250304
  2. ZOFRAN [Concomitant]
     Active Substance: ONDANSETRON HYDROCHLORIDE
     Indication: Nausea
  3. ZOFRAN [Concomitant]
     Active Substance: ONDANSETRON HYDROCHLORIDE
     Indication: Vomiting

REACTIONS (8)
  - Suicidal ideation [Unknown]
  - Mental impairment [Unknown]
  - Chest discomfort [Unknown]
  - Dissociation [Unknown]
  - Feeling drunk [Unknown]
  - Blood pressure increased [Unknown]
  - Vertigo [Unknown]
  - Tremor [Unknown]

NARRATIVE: CASE EVENT DATE: 20250101
